FAERS Safety Report 6638665-6 (Version None)
Quarter: 2010Q1

REPORT INFORMATION
  Report Type: 
  Country: None (occurrence: None)
  Receive Date: 20100316
  Receipt Date: 20100316
  Transmission Date: 20100710
  Serious: Yes (Hospitalization)
  Sender: FDA-Public Use
  Company Number: None

PATIENT
  Age: 60 Year
  Sex: Female
  Weight: 61.4 kg

DRUGS (1)
  1. LISINOPRIL [Suspect]

REACTIONS (2)
  - ANGIOEDEMA [None]
  - SIALOADENITIS [None]
